FAERS Safety Report 6661146-0 (Version None)
Quarter: 2010Q1

REPORT INFORMATION
  Report Type: 
  Country: None (occurrence: None)
  Receive Date: 20100331
  Receipt Date: 20100329
  Transmission Date: 20100710
  Serious: Yes (Hospitalization, Other)
  Sender: FDA-Public Use
  Company Number: A0842850A

PATIENT
  Sex: Female
  Weight: 66 kg

DRUGS (4)
  1. TYKERB [Suspect]
     Dosage: 1250MG PER DAY
     Route: 048
     Dates: start: 20091207, end: 20100122
  2. XELODA [Concomitant]
     Dosage: 1000MG TWICE PER DAY
     Route: 065
     Dates: start: 20091202, end: 20100117
  3. DILAUDID [Concomitant]
     Indication: DRUG USE FOR UNKNOWN INDICATION
     Route: 065
  4. DECADRON [Concomitant]
     Indication: DRUG USE FOR UNKNOWN INDICATION
     Route: 065

REACTIONS (5)
  - BRAIN OEDEMA [None]
  - CONVULSION [None]
  - DIARRHOEA [None]
  - METASTASES TO LIVER [None]
  - METASTASES TO LUNG [None]
